FAERS Safety Report 20013523 (Version 4)
Quarter: 2022Q1

REPORT INFORMATION
  Report Type: Spontaneous
  Country: JP (occurrence: JP)
  Receive Date: 20211029
  Receipt Date: 20220311
  Transmission Date: 20220423
  Serious: Yes (Death, Other)
  Sender: FDA-Public Use
  Company Number: JP-BRISTOL-MYERS SQUIBB COMPANY-BMS-2021-112502

PATIENT
  Age: 82 Year
  Sex: Male
  Weight: 50 kg

DRUGS (2)
  1. OPDIVO [Suspect]
     Active Substance: NIVOLUMAB
     Indication: Pleural mesothelioma malignant
     Dosage: UNKNOWN
     Route: 041
     Dates: start: 20210917, end: 20211023
  2. YERVOY [Suspect]
     Active Substance: IPILIMUMAB
     Indication: Pleural mesothelioma malignant
     Dosage: UNK
     Route: 041
     Dates: start: 20210917, end: 20211023

REACTIONS (2)
  - Malignant neoplasm progression [Fatal]
  - Immune-mediated cytopenia [Unknown]

NARRATIVE: CASE EVENT DATE: 20211023
